FAERS Safety Report 5080486-2 (Version None)
Quarter: 2006Q3

REPORT INFORMATION
  Report Type: 
  Country: None (occurrence: None)
  Receive Date: 20060809
  Receipt Date: 20060724
  Transmission Date: 20061208
  Serious: Yes (Hospitalization, Other)
  Sender: FDA-Public Use
  Company Number: 2006AL001929

PATIENT
  Age: 62 Year
  Sex: Male

DRUGS (4)
  1. IBUPROFEN [Suspect]
     Indication: HIP ARTHROPLASTY
     Dosage: UNKNOWN;PRN;UNK
  2. ASPIRIN [Concomitant]
  3. BENDROFLUAZIDE [Concomitant]
  4. ATENOLOL [Concomitant]

REACTIONS (2)
  - EROSIVE DUODENITIS [None]
  - GASTROINTESTINAL HAEMORRHAGE [None]
